FAERS Safety Report 11629516 (Version 1)
Quarter: 2015Q4

REPORT INFORMATION
  Report Type: Spontaneous
  Country: FR (occurrence: FR)
  Receive Date: 20151014
  Receipt Date: 20151014
  Transmission Date: 20160304
  Serious: Yes (Other)
  Sender: FDA-Public Use
  Company Number: FR-JNJFOC-20141114385

PATIENT

DRUGS (2)
  1. DARUNAVIR [Suspect]
     Active Substance: DARUNAVIR
     Indication: HIV INFECTION
     Route: 048
  2. RITONAVIR. [Suspect]
     Active Substance: RITONAVIR
     Indication: HIV INFECTION
     Route: 048

REACTIONS (34)
  - Syphilis [Unknown]
  - Back pain [Unknown]
  - Pharyngitis [Unknown]
  - Anxiety [Unknown]
  - Drug ineffective [Unknown]
  - Low density lipoprotein increased [Unknown]
  - Blood triglycerides increased [Unknown]
  - Gastroenteritis [Unknown]
  - Diarrhoea [Unknown]
  - Headache [Unknown]
  - Bronchitis [Unknown]
  - Abdominal pain [Unknown]
  - Upper respiratory tract infection [Unknown]
  - Pyrexia [Unknown]
  - Arthralgia [Unknown]
  - Alanine aminotransferase increased [Unknown]
  - Cough [Unknown]
  - Nausea [Unknown]
  - Rash [Unknown]
  - Depression [Unknown]
  - Myalgia [Unknown]
  - Asthenia [Unknown]
  - Influenza [Unknown]
  - Blood cholesterol increased [Unknown]
  - Sinusitis [Unknown]
  - Flatulence [Unknown]
  - Aspartate aminotransferase increased [Unknown]
  - Nasopharyngitis [Unknown]
  - No therapeutic response [Unknown]
  - Insomnia [Unknown]
  - Fatigue [Unknown]
  - Dizziness [Unknown]
  - Constipation [Unknown]
  - Vomiting [Unknown]
